FAERS Safety Report 5701765-9 (Version None)
Quarter: 2008Q2

REPORT INFORMATION
  Report Type: 
  Country: None (occurrence: None)
  Receive Date: 20080410
  Receipt Date: 20080410
  Transmission Date: 20081010
  Serious: No
  Sender: FDA-Public Use
  Company Number: None

PATIENT
  Sex: Female
  Weight: 55.3388 kg

DRUGS (2)
  1. BONIVA [Suspect]
     Indication: OSTEOPENIA
     Dosage: 150 MG 1X A MONTH
     Dates: start: 20071210
  2. BONIVA [Suspect]
     Indication: OSTEOPENIA
     Dosage: 150 MG 1X A MONTH
     Dates: start: 20080110

REACTIONS (6)
  - ARTHRITIS [None]
  - BREAST PAIN [None]
  - BREAST SWELLING [None]
  - MUSCLE DISORDER [None]
  - OEDEMA PERIPHERAL [None]
  - PAIN IN EXTREMITY [None]
